FAERS Safety Report 21934003 (Version 4)
Quarter: 2023Q2

REPORT INFORMATION
  Report Type: Spontaneous
  Country: US (occurrence: US)
  Receive Date: 20230201
  Receipt Date: 20230509
  Transmission Date: 20230721
  Serious: No
  Sender: FDA-Public Use
  Company Number: US-SA-SAC20230130000454

PATIENT
  Age: 61 Year
  Sex: Female

DRUGS (1)
  1. DUPIXENT [Suspect]
     Active Substance: DUPILUMAB
     Indication: Dermatitis atopic
     Dosage: 300 MG, QOW
     Route: 058
     Dates: start: 202111

REACTIONS (8)
  - Joint stiffness [Unknown]
  - Eye pain [Unknown]
  - Diarrhoea [Recovered/Resolved]
  - Dyspnoea [Unknown]
  - Weight increased [Unknown]
  - Myalgia [Unknown]
  - Blepharitis [Unknown]
  - Arthralgia [Unknown]

NARRATIVE: CASE EVENT DATE: 20220101
